FAERS Safety Report 8357610-9 (Version None)
Quarter: 2012Q2

REPORT INFORMATION
  Report Type: 
  Country: None (occurrence: None)
  Receive Date: 20120510
  Receipt Date: 20120501
  Transmission Date: 20120825
  Serious: Yes (Other)
  Sender: FDA-Public Use
  Company Number: 2012SP005357

PATIENT
  Age: 56 Year
  Sex: Male

DRUGS (6)
  1. RIBAVIRIN [Suspect]
     Indication: HEPATIC CIRRHOSIS
     Dosage: 1200 MG;QD;
     Dates: start: 20111201
  2. RIBAVIRIN [Suspect]
     Indication: HEPATITIS C
     Dosage: 1200 MG;QD;
     Dates: start: 20111201
  3. VICTRELIS [Suspect]
     Indication: HEPATIC CIRRHOSIS
     Dosage: 800 MG;TID;
     Dates: start: 20111201, end: 20111201
  4. VICTRELIS [Suspect]
     Indication: HEPATITIS C
     Dosage: 800 MG;TID;
     Dates: start: 20111201, end: 20111201
  5. PEGINTERFERON ALFA-2A [Suspect]
     Indication: HEPATIC CIRRHOSIS
     Dosage: 180 MCG;QW;
     Dates: start: 20111201
  6. PEGINTERFERON ALFA-2A [Suspect]
     Indication: HEPATITIS C
     Dosage: 180 MCG;QW;
     Dates: start: 20111201

REACTIONS (2)
  - NEUTROPENIA [None]
  - CAECITIS [None]
